FAERS Safety Report 24538564 (Version 3)
Quarter: 2025Q4

REPORT INFORMATION
  Report Type: Spontaneous
  Country: CA (occurrence: CA)
  Receive Date: 20241023
  Receipt Date: 20251107
  Transmission Date: 20260117
  Serious: Yes (Death)
  Sender: ROCHE
  Company Number: CA-ROCHE-10000113473

PATIENT
  Age: 76 Year
  Sex: Male

DRUGS (1)
  1. PIRFENIDONE [Suspect]
     Active Substance: PIRFENIDONE
     Indication: Idiopathic pulmonary fibrosis
     Route: 048

REACTIONS (4)
  - Viral infection [Fatal]
  - Malaise [Fatal]
  - Death [Fatal]
  - Idiopathic pulmonary fibrosis [Fatal]
